FAERS Safety Report 20135590 (Version 2)
Quarter: 2022Q1

REPORT INFORMATION
  Report Type: Spontaneous
  Country: US (occurrence: None)
  Receive Date: 20211201
  Receipt Date: 20220103
  Transmission Date: 20220423
  Serious: No
  Sender: FDA-Public Use
  Company Number: 2021A807281

PATIENT
  Age: 28168 Day
  Sex: Female
  Weight: 99.8 kg

DRUGS (2)
  1. BYDUREON BCISE [Suspect]
     Active Substance: EXENATIDE
     Indication: Type 2 diabetes mellitus
     Route: 058
     Dates: start: 20211029
  2. ADALIMUMAB [Concomitant]
     Active Substance: ADALIMUMAB
     Route: 065

REACTIONS (7)
  - Injection site discolouration [Recovering/Resolving]
  - Visual impairment [Unknown]
  - Confusional state [Unknown]
  - Injection site haemorrhage [Unknown]
  - Injection site pain [Unknown]
  - Multiple use of single-use product [Unknown]
  - Drug delivery system malfunction [Unknown]

NARRATIVE: CASE EVENT DATE: 20211104
